FAERS Safety Report 9040566 (Version 1)
Quarter: 2013Q1

REPORT INFORMATION
  Report Type: Report from Study
  Country: US (occurrence: US)
  Receive Date: 20130129
  Receipt Date: 20130129
  Transmission Date: 20140127
  Serious: No
  Sender: FDA-Public Use
  Company Number: US-ABBOTT-12P-163-0888779-00

PATIENT
  Sex: Female

DRUGS (3)
  1. HUMIRA 40 MG/0.8 ML PEN [Suspect]
     Indication: CROHN^S DISEASE
     Dosage: DAY 1 KEEP REFRIGERATED DO NOT FREEZE CLEAR INJECTION.
     Route: 058
     Dates: start: 201112
  2. HUMIRA 40 MG/0.8 ML PEN [Suspect]
     Dosage: DAY 15 KEEP REFRIGERATED DO NOT FREEZE CLEAR INJECTION.
     Route: 058
  3. HUMIRA 40 MG/0.8 ML PEN [Suspect]
     Dosage: KEEP REFRIGERATED DO NOT FREEZE CLEAR INJECTION.
     Route: 058

REACTIONS (2)
  - Injection site bruising [Unknown]
  - Headache [Unknown]
